FAERS Safety Report 5428739-X (Version None)
Quarter: 2007Q3

REPORT INFORMATION
  Report Type: 
  Country: None (occurrence: None)
  Receive Date: 20070731
  Receipt Date: 20070420
  Transmission Date: 20080115
  Serious: No
  Sender: FDA-Public Use
  Company Number: US200704004947

PATIENT
  Age: 59 Year
  Sex: Female
  Weight: 166.9 kg

DRUGS (2)
  1. BYETTA [Suspect]
     Indication: TYPE 2 DIABETES MELLITUS
     Dosage: 5 UG, 2/D, SUBCUTANEOUS
     Route: 058
     Dates: start: 20070413
  2. GLUCOSAMINE W/CHONDROITIN (CHONDROITIN SULFATE, GLUCOSAMINE) [Concomitant]

REACTIONS (1)
  - ARTHRALGIA [None]
